FAERS Safety Report 5661021-4 (Version None)
Quarter: 2008Q1

REPORT INFORMATION
  Report Type: 
  Country: None (occurrence: None)
  Receive Date: 20080311
  Receipt Date: 20080306
  Transmission Date: 20080703
  Serious: Yes (Other)
  Sender: FDA-Public Use
  Company Number: JP-BOEHRINGER INGELHEIM GMBH, GERMANY-2008-BP-03488NB

PATIENT
  Age: 59 Year
  Sex: Female

DRUGS (1)
  1. BI-SIFROL TABLETS [Suspect]
     Route: 048

REACTIONS (1)
  - CONGESTIVE CARDIOMYOPATHY [None]
